FAERS Safety Report 6167267-3 (Version None)
Quarter: 2009Q2

REPORT INFORMATION
  Report Type: 
  Country: None (occurrence: None)
  Receive Date: 20090424
  Receipt Date: 20090416
  Transmission Date: 20091009
  Serious: Yes (Other)
  Sender: FDA-Public Use
  Company Number: US-ELI_LILLY_AND_COMPANY-US200904003786

PATIENT
  Sex: Male

DRUGS (2)
  1. HUMALOG [Suspect]
  2. NOVOLOG [Concomitant]

REACTIONS (6)
  - BLOOD GLUCOSE DECREASED [None]
  - BLOOD GLUCOSE INCREASED [None]
  - DIZZINESS [None]
  - PROSTATIC OPERATION [None]
  - REHABILITATION THERAPY [None]
  - WRONG DRUG ADMINISTERED [None]
